FAERS Safety Report 21220086 (Version 1)
Quarter: 2022Q3

REPORT INFORMATION
  Report Type: Spontaneous
  Country: US (occurrence: US)
  Receive Date: 20220817
  Receipt Date: 20220817
  Transmission Date: 20221027
  Serious: Yes (Hospitalization)
  Sender: FDA-Public Use
  Company Number: US-STRIDES ARCOLAB LIMITED-2022SP010259

PATIENT
  Age: 62 Year
  Sex: Male

DRUGS (12)
  1. DOXORUBICIN [Suspect]
     Active Substance: DOXORUBICIN
     Indication: High-grade B-cell lymphoma
     Dosage: UNK, CYCLICAL (R-EPOCH)
     Route: 065
  2. DOXORUBICIN [Suspect]
     Active Substance: DOXORUBICIN
     Indication: Metastases to meninges
     Dosage: UNK (R-CHOP)
     Route: 065
  3. PREDNISOLONE [Suspect]
     Active Substance: PREDNISOLONE
     Indication: High-grade B-cell lymphoma
     Dosage: UNK, CYCLICAL (R-EPOCH)
     Route: 065
  4. PREDNISOLONE [Suspect]
     Active Substance: PREDNISOLONE
     Indication: Metastases to meninges
     Dosage: UNK (R-CHOP)
     Route: 065
  5. ETOPOSIDE [Suspect]
     Active Substance: ETOPOSIDE
     Indication: High-grade B-cell lymphoma
     Dosage: UNK, CYCLICAL (R-EPOCH)
     Route: 065
  6. METHOTREXATE [Suspect]
     Active Substance: METHOTREXATE
     Indication: Metastases to meninges
     Dosage: UNK RECEIVED HIGH-DOSE METHOTREXATE (R-CHOP)
     Route: 065
  7. CYCLOPHOSPHAMIDE [Suspect]
     Active Substance: CYCLOPHOSPHAMIDE
     Indication: High-grade B-cell lymphoma
     Dosage: UNK, CYCLICAL (R-EPOCH)
     Route: 065
  8. CYCLOPHOSPHAMIDE [Suspect]
     Active Substance: CYCLOPHOSPHAMIDE
     Indication: Metastases to meninges
     Dosage: UNK (R-CHOP)
     Route: 065
  9. RITUXIMAB [Suspect]
     Active Substance: RITUXIMAB
     Indication: High-grade B-cell lymphoma
     Dosage: UNK, CYCLICAL (R-EPOCH)
     Route: 065
  10. RITUXIMAB [Suspect]
     Active Substance: RITUXIMAB
     Indication: Metastases to meninges
     Dosage: UNK (R-CHOP)
     Route: 065
  11. VINCRISTINE [Suspect]
     Active Substance: VINCRISTINE
     Indication: High-grade B-cell lymphoma
     Dosage: UNK, CYCLICAL (R-EPOCH)
     Route: 065
  12. VINCRISTINE [Suspect]
     Active Substance: VINCRISTINE
     Indication: Metastases to meninges
     Dosage: UNK (R-CHOP)
     Route: 065

REACTIONS (4)
  - Epidural haemorrhage [Unknown]
  - Seizure [Unknown]
  - Drug ineffective [Unknown]
  - Off label use [Unknown]
